FAERS Safety Report 9399179 (Version 2)
Quarter: 2013Q3

REPORT INFORMATION
  Report Type: Spontaneous
  Country: US (occurrence: US)
  Receive Date: 20130715
  Receipt Date: 20130717
  Transmission Date: 20140515
  Serious: Yes (Other)
  Sender: FDA-Public Use
  Company Number: US-RB-055738-13

PATIENT
  Age: 65 Year
  Sex: Male

DRUGS (1)
  1. MUCINEX UNSPECIFIED [Suspect]
     Indication: PRODUCT USED FOR UNKNOWN INDICATION
     Route: 048
     Dates: start: 20130624

REACTIONS (1)
  - Epistaxis [Recovered/Resolved]
